FAERS Safety Report 26099117 (Version 1)
Quarter: 2025Q4

REPORT INFORMATION
  Report Type: Spontaneous
  Country: EU (occurrence: EU)
  Receive Date: 20251128
  Receipt Date: 20251128
  Transmission Date: 20260118
  Serious: Yes (Hospitalization, Other)
  Sender: Onesource Specialty Pharma
  Company Number: EU-STRIDES ARCOLAB LIMITED-2025OS001336

PATIENT
  Age: 30 Year
  Sex: Female

DRUGS (4)
  1. BUPIVACAINE [Suspect]
     Active Substance: BUPIVACAINE
     Indication: Epidural anaesthesia
     Dosage: 10ML INJECTION OF A BUPIVACAINE 0.8 MG/ML AND SUFENTANIL 1 ?G/ML SOLUTION (INJECTION)
     Route: 008
  2. LIDOCAINE [Suspect]
     Active Substance: LIDOCAINE
     Indication: Epidural anaesthesia
     Dosage: INJECTED 2ML OF LIDOCAINE 20 MG/ML AND EPINEPHRINE [ADRENALINE] 5 ?G/ML
     Route: 008
  3. EPINEPHRINE [Suspect]
     Active Substance: EPINEPHRINE
     Indication: Epidural anaesthesia
     Dosage: INJECTED 2ML OF LIDOCAINE 20 MG/ML AND EPINEPHRINE [ADRENALINE] 5 ?G/ML
     Route: 008
  4. SUFENTANIL [Suspect]
     Active Substance: SUFENTANIL
     Indication: Epidural anaesthesia
     Dosage: 10ML INJECTION OF A BUPIVACAINE 0.8 MG/ML AND SUFENTANIL 1 ?G/ML SOLUTION
     Route: 008

REACTIONS (3)
  - Horner^s syndrome [None]
  - Paresis [None]
  - Maternal exposure during delivery [Unknown]
